FAERS Safety Report 25156502 (Version 1)
Quarter: 2025Q2

REPORT INFORMATION
  Report Type: Spontaneous
  Country: US (occurrence: None)
  Receive Date: 20250403
  Receipt Date: 20250403
  Transmission Date: 20250717
  Serious: Yes (Hospitalization)
  Sender: FDA-CTU
  Company Number: None

PATIENT
  Age: 70 Year
  Sex: Female
  Weight: 92.1 kg

DRUGS (1)
  1. BOSUTINIB [Suspect]
     Active Substance: BOSUTINIB
     Indication: Chronic myeloid leukaemia
     Dates: start: 20241120, end: 20250401

REACTIONS (3)
  - Chylothorax [None]
  - Acute respiratory failure [None]
  - Pleural effusion [None]

NARRATIVE: CASE EVENT DATE: 20250401
